FAERS Safety Report 14959992 (Version 1)
Quarter: 2018Q2

REPORT INFORMATION
  Report Type: Spontaneous
  Country: AM (occurrence: US)
  Receive Date: 20180531
  Receipt Date: 20180531
  Transmission Date: 20180711
  Serious: Yes (Other)
  Sender: FDA-Public Use
  Company Number: AM-009507513-1805USA011184

PATIENT
  Age: 59 Year
  Sex: Male

DRUGS (10)
  1. PRIMAXIN IV [Suspect]
     Active Substance: CILASTATIN SODIUM\IMIPENEM
     Indication: PULMONARY TUBERCULOSIS
     Dosage: 2000 UNK, QD,
     Route: 065
     Dates: start: 20180112, end: 20180414
  2. DELAMANID [Suspect]
     Active Substance: DELAMANID
     Indication: PULMONARY TUBERCULOSIS
     Dosage: 200 UNK, QD, UNKNOWN
     Route: 065
     Dates: start: 20180112, end: 20180414
  3. BEDAQUILINE [Suspect]
     Active Substance: BEDAQUILINE
     Indication: PULMONARY TUBERCULOSIS
     Dosage: 400 UNK, QD, UNKNOWN
     Route: 065
     Dates: start: 20180112, end: 20180414
  4. CYANOCOBALAMIN. [Concomitant]
     Active Substance: CYANOCOBALAMIN
  5. CLOFAZIMINE [Suspect]
     Active Substance: CLOFAZIMINE
     Indication: PULMONARY TUBERCULOSIS
     Dosage: UNK UNK, QD
     Route: 065
     Dates: start: 20180112, end: 20180414
  6. AMOXICILLIN (+) CLAVULANATE POTASSIUM [Suspect]
     Active Substance: AMOXICILLIN\CLAVULANATE POTASSIUM
     Indication: PULMONARY TUBERCULOSIS
     Dosage: 2000 UNK, QD, UNKNOWN
     Dates: start: 20180112, end: 20180414
  7. PYRIDOXINE [Concomitant]
     Active Substance: PYRIDOXINE
  8. FOLIC ACID. [Concomitant]
     Active Substance: FOLIC ACID
  9. FERRUM LEK (DEXTRIFERRON) [Concomitant]
  10. MOXIFLOXACIN. [Suspect]
     Active Substance: MOXIFLOXACIN
     Indication: PULMONARY TUBERCULOSIS
     Dosage: 400 UNK, QD, UNKNOWN
     Route: 065

REACTIONS (2)
  - Pancoast^s tumour [Not Recovered/Not Resolved]
  - Musculoskeletal pain [Unknown]

NARRATIVE: CASE EVENT DATE: 20180321
